FAERS Safety Report 12690073 (Version 6)
Quarter: 2016Q4

REPORT INFORMATION
  Report Type: Spontaneous
  Country: JP (occurrence: JP)
  Receive Date: 20160826
  Receipt Date: 20161128
  Transmission Date: 20170207
  Serious: Yes (Hospitalization, Disabling, Other)
  Sender: FDA-Public Use
  Company Number: JP-PFIZER INC-2016403386

PATIENT
  Age: 1 Year
  Sex: Female
  Weight: 9.65 kg

DRUGS (3)
  1. FOSPHENYTOIN SODIUM. [Suspect]
     Active Substance: FOSPHENYTOIN SODIUM
     Indication: STATUS EPILEPTICUS
     Dosage: 22 MG/KG (FOR AN HOUR)
     Route: 041
     Dates: start: 20160818, end: 20160818
  2. MIDAZOLAM [Concomitant]
     Active Substance: MIDAZOLAM\MIDAZOLAM HYDROCHLORIDE
     Indication: STATUS EPILEPTICUS
     Dosage: UNK
     Route: 065
  3. FOSPHENYTOIN SODIUM. [Suspect]
     Active Substance: FOSPHENYTOIN SODIUM
     Dosage: 7 MG/KG (MAINTENANCE DOSE)
     Route: 041
     Dates: start: 20160819, end: 20160819

REACTIONS (7)
  - Extrapyramidal disorder [Recovered/Resolved with Sequelae]
  - Altered state of consciousness [Recovered/Resolved]
  - Drug level increased [Recovered/Resolved with Sequelae]
  - Seizure [Unknown]
  - Product use issue [Unknown]
  - Overdose [Unknown]
  - Toxicity to various agents [Unknown]

NARRATIVE: CASE EVENT DATE: 20160819
